FAERS Safety Report 17440355 (Version 2)
Quarter: 2020Q1

REPORT INFORMATION
  Report Type: Spontaneous
  Country: ES (occurrence: ES)
  Receive Date: 20200220
  Receipt Date: 20200323
  Transmission Date: 20200409
  Serious: Yes (Death, Other)
  Sender: FDA-Public Use
  Company Number: NVSC2020ES045714

PATIENT
  Sex: Male
  Weight: 2.5 kg

DRUGS (5)
  1. AZITHROMYCIN ANHYDROUS. [Suspect]
     Active Substance: AZITHROMYCIN ANHYDROUS
     Indication: FOETAL EXPOSURE DURING PREGNANCY
     Dosage: MATERNAL DOSE: UNK
     Route: 064
  2. AMPICILLIN [Suspect]
     Active Substance: AMPICILLIN
     Indication: FOETAL EXPOSURE DURING PREGNANCY
     Dosage: MATERNAL DOSE: UNK
     Route: 064
  3. NITRIC OXIDE. [Concomitant]
     Active Substance: NITRIC OXIDE
     Indication: PRODUCT USED FOR UNKNOWN INDICATION
     Dosage: MATERNAL DOSE: UNK
     Route: 064
  4. CEFOTAXIME [Concomitant]
     Active Substance: CEFOTAXIME SODIUM
     Indication: PRODUCT USED FOR UNKNOWN INDICATION
     Dosage: MATERNAL DOSE: UNK
     Route: 064
  5. GENTAMICIN. [Suspect]
     Active Substance: GENTAMICIN
     Indication: FOETAL EXPOSURE DURING PREGNANCY
     Dosage: MATERNAL DOSE: UNK
     Route: 064

REACTIONS (13)
  - Intraventricular haemorrhage [Unknown]
  - Death neonatal [Fatal]
  - Disseminated intravascular coagulation [Unknown]
  - Acute kidney injury [Unknown]
  - Bloody discharge [Unknown]
  - Foetal exposure during pregnancy [Unknown]
  - Congenital syphilis [Fatal]
  - Hepatic necrosis [Unknown]
  - Pulmonary hypertension [Unknown]
  - Multiple organ dysfunction syndrome [Unknown]
  - Haemorrhagic stroke [Unknown]
  - Hydrops foetalis [Fatal]
  - Premature baby [Unknown]
